FAERS Safety Report 15969064 (Version 1)
Quarter: 2019Q1

REPORT INFORMATION
  Report Type: Report from Study
  Country: US (occurrence: US)
  Receive Date: 20190215
  Receipt Date: 20190215
  Transmission Date: 20190418
  Serious: Yes (Hospitalization)
  Sender: FDA-Public Use
  Company Number: US-BIOGEN-2019BI00694751

PATIENT
  Sex: Male

DRUGS (1)
  1. TECFIDERA [Suspect]
     Active Substance: DIMETHYL FUMARATE
     Indication: MULTIPLE SCLEROSIS
     Route: 065
     Dates: start: 20141009

REACTIONS (6)
  - Skin ulcer [Unknown]
  - Memory impairment [Unknown]
  - Arthropathy [Unknown]
  - Fall [Recovered/Resolved]
  - Gait inability [Unknown]
  - Musculoskeletal disorder [Unknown]
